FAERS Safety Report 9589543 (Version 1)
Quarter: 2013Q4

REPORT INFORMATION
  Report Type: Spontaneous
  Country: US (occurrence: US)
  Receive Date: 20131003
  Receipt Date: 20131003
  Transmission Date: 20140711
  Serious: No
  Sender: FDA-Public Use
  Company Number: US-AMGEN-USASP2012070461

PATIENT
  Age: 66 Year
  Sex: Female

DRUGS (18)
  1. ENBREL [Suspect]
     Indication: PRODUCT USED FOR UNKNOWN INDICATION
     Dosage: 50 MG, WEEKLY
     Route: 058
  2. VITAMIN D                          /00107901/ [Concomitant]
     Dosage: 400 UNK, UNK
  3. TOPIRAMATE [Concomitant]
     Dosage: 25 MG, UNK
  4. FLONASE [Concomitant]
     Dosage: 0.05%
  5. LEFLUNOMIDE [Concomitant]
     Dosage: 10 MG, UNK
  6. PREDNISONE [Concomitant]
     Dosage: 1 MG, UNK
  7. ENALAPRIL [Concomitant]
     Dosage: 10 MG, UNK
  8. ULTRAM [Concomitant]
     Dosage: 50 MG, UNK
  9. SKELAXIN                           /00611501/ [Concomitant]
     Dosage: 800 MG, UNK
  10. PLAQUENIL                          /00072602/ [Concomitant]
     Dosage: 200 MG, UNK
  11. CELEBREX [Concomitant]
     Dosage: 50 MG, UNK
  12. AMBIEN [Concomitant]
     Dosage: 5 MG, UNK
  13. CITALOPRAM [Concomitant]
     Dosage: 10 MG, UNK
  14. PRILOSEC                           /00661201/ [Concomitant]
     Dosage: 10 MG, UNK
  15. CALCIUM [Concomitant]
     Dosage: 500 MG, UNK
  16. NEXIUM                             /01479302/ [Concomitant]
     Dosage: 20 MG, UNK
  17. OXYCODONE [Concomitant]
     Dosage: 5 MG, UNK
  18. FIBER [Concomitant]
     Dosage: UNK

REACTIONS (1)
  - Drug ineffective [Unknown]
